FAERS Safety Report 20566726 (Version 1)
Quarter: 2022Q1

REPORT INFORMATION
  Report Type: Spontaneous
  Country: US (occurrence: None)
  Receive Date: 20220307
  Receipt Date: 20220307
  Transmission Date: 20220424
  Serious: No
  Sender: FDA-Public Use
  Company Number: None

PATIENT
  Age: 44 Year
  Sex: Female
  Weight: 62.55 kg

DRUGS (1)
  1. CROMOLYN SODIUM [Suspect]
     Active Substance: CROMOLYN SODIUM
     Indication: Mast cell activation syndrome
     Dosage: OTHER QUANTITY : 2 AMPLE^S EACH 5ML;?FREQUENCY : 4 TIMES A DAY;?
     Route: 048
     Dates: start: 20190529

REACTIONS (10)
  - Product lot number issue [None]
  - Hypersensitivity [None]
  - Product quality issue [None]
  - Extra dose administered [None]
  - Throat tightness [None]
  - Pharyngeal swelling [None]
  - Cough [None]
  - Lip swelling [None]
  - Drug ineffective [None]
  - Swelling face [None]

NARRATIVE: CASE EVENT DATE: 20220226
